FAERS Safety Report 7998995-2 (Version None)
Quarter: 2011Q4

REPORT INFORMATION
  Report Type: 
  Country: None (occurrence: None)
  Receive Date: 20111221
  Receipt Date: 20111219
  Transmission Date: 20120403
  Serious: Yes (Other)
  Sender: FDA-Public Use
  Company Number: US-JNJFOC-20110912063

PATIENT
  Sex: Male

DRUGS (10)
  1. TRIAMTERENE [Concomitant]
     Indication: HYPERTENSION
  2. STELARA [Suspect]
     Route: 058
     Dates: start: 20110711
  3. STELARA [Suspect]
     Route: 058
     Dates: start: 20111010
  4. ZYRTEC [Concomitant]
     Indication: MULTIPLE ALLERGIES
  5. STELARA [Suspect]
     Route: 058
     Dates: start: 20110427
  6. AMLODIPINE [Concomitant]
     Indication: HYPERTENSION
  7. STELARA [Suspect]
     Route: 058
     Dates: start: 20101108
  8. STELARA [Suspect]
     Indication: PSORIASIS
     Route: 058
     Dates: start: 20101011
  9. STELARA [Suspect]
     Route: 058
     Dates: start: 20110207
  10. INSULIN [Concomitant]
     Indication: DIABETES MELLITUS

REACTIONS (1)
  - HEPATITIS C [None]
